FAERS Safety Report 6161375-9 (Version None)
Quarter: 2009Q2

REPORT INFORMATION
  Report Type: 
  Country: None (occurrence: None)
  Receive Date: 20090421
  Receipt Date: 20090414
  Transmission Date: 20091009
  Serious: Yes (Hospitalization, Other)
  Sender: FDA-Public Use
  Company Number: GB-BAYER-200911237BNE

PATIENT
  Age: 48 Year

DRUGS (13)
  1. ASPIRIN [Suspect]
     Indication: DRUG USE FOR UNKNOWN INDICATION
  2. DIDANOSINE [Suspect]
     Indication: DRUG USE FOR UNKNOWN INDICATION
  3. EFAVIRENZ [Suspect]
     Indication: DRUG USE FOR UNKNOWN INDICATION
  4. KALETRA [Suspect]
     Indication: DRUG USE FOR UNKNOWN INDICATION
  5. LAMIVUDINE [Suspect]
     Indication: DRUG USE FOR UNKNOWN INDICATION
  6. NELFINAVIR [Suspect]
     Indication: DRUG USE FOR UNKNOWN INDICATION
  7. RAMIPRIL [Suspect]
     Indication: DRUG USE FOR UNKNOWN INDICATION
  8. STAVUDINE [Suspect]
     Indication: DRUG USE FOR UNKNOWN INDICATION
  9. TENOFOVIR [Suspect]
     Indication: DRUG USE FOR UNKNOWN INDICATION
  10. ZIDOVUDINE [Suspect]
     Indication: DRUG USE FOR UNKNOWN INDICATION
  11. ATORVASTATIN [Concomitant]
     Indication: DRUG USE FOR UNKNOWN INDICATION
  12. OMEGA-3-ACID-ETHYL ESTERS [Concomitant]
     Indication: DRUG USE FOR UNKNOWN INDICATION
  13. PRAVASTATIN [Concomitant]
     Indication: DRUG USE FOR UNKNOWN INDICATION

REACTIONS (2)
  - DRUG RESISTANCE [None]
  - MYOCARDIAL INFARCTION [None]
